FAERS Safety Report 9927484 (Version 1)
Quarter: 2014Q1

REPORT INFORMATION
  Report Type: Spontaneous
  Country: US (occurrence: US)
  Receive Date: 20140227
  Receipt Date: 20140227
  Transmission Date: 20141002
  Serious: Yes (Life-Threatening, Hospitalization)
  Sender: FDA-Public Use
  Company Number: PHEH2014US003569

PATIENT
  Sex: Female

DRUGS (1)
  1. VALSARTAN + HCT [Suspect]
     Dosage: UNK UKN, UNK

REACTIONS (4)
  - Blood sodium decreased [Unknown]
  - Pneumonia viral [Unknown]
  - H1N1 influenza [Unknown]
  - Confusional state [Unknown]
